FAERS Safety Report 4925399-9 (Version None)
Quarter: 2006Q1

REPORT INFORMATION
  Report Type: 
  Country: None (occurrence: None)
  Receive Date: 20060228
  Receipt Date: 20050211
  Transmission Date: 20060701
  Serious: Yes (Hospitalization, Other)
  Sender: FDA-Public Use
  Company Number: US-GLAXOSMITHKLINE-A0545470A

PATIENT
  Age: 49 Year
  Sex: Female

DRUGS (6)
  1. LAMICTAL [Suspect]
     Indication: BIPOLAR DISORDER
     Dosage: 50MG UNKNOWN
     Route: 048
     Dates: start: 20050114
  2. WELLBUTRIN SR [Concomitant]
     Dosage: 200MG TWICE PER DAY
     Route: 048
  3. PROZAC [Concomitant]
     Dosage: 10MG ALTERNATE DAYS
     Route: 048
  4. ATIVAN [Concomitant]
     Dosage: 2MG AT NIGHT
     Route: 048
  5. ADDERALL 10 [Concomitant]
     Dosage: 5MG AT NIGHT
     Route: 065
  6. VICODIN [Concomitant]
     Route: 048

REACTIONS (3)
  - HEADACHE [None]
  - PYREXIA [None]
  - RASH [None]
